FAERS Safety Report 18611066 (Version 2)
Quarter: 2021Q1

REPORT INFORMATION
  Report Type: Spontaneous
  Country: NZ (occurrence: NZ)
  Receive Date: 20201214
  Receipt Date: 20210329
  Transmission Date: 20210419
  Serious: Yes (Death)
  Sender: FDA-Public Use
  Company Number: NZ-MYLANLABS-2020M1100525

PATIENT
  Age: 52 Year
  Sex: Male

DRUGS (10)
  1. CLOZARIL [Suspect]
     Active Substance: CLOZAPINE
     Indication: SCHIZOPHRENIA
     Dosage: 25 MILLIGRAM, AM
     Route: 048
     Dates: start: 20030801, end: 20201122
  2. LANTUS [Concomitant]
     Active Substance: INSULIN GLARGINE
     Indication: TYPE 2 DIABETES MELLITUS
     Dosage: 20 UNITS, MANE, 15 UNITS NIGHT
     Route: 058
  3. LAXSOL [Concomitant]
     Active Substance: DOCUSATE SODIUM\SENNOSIDES A AND B
     Indication: CONSTIPATION
     Dosage: 50 MG/5 MG, BID
     Route: 048
  4. CLOZARIL [Suspect]
     Active Substance: CLOZAPINE
     Dosage: UNK
     Route: 048
     Dates: start: 20030804
  5. QUINAPRIL. [Concomitant]
     Active Substance: QUINAPRIL
     Indication: HYPERTENSION
     Dosage: 10 MILLIGRAM, AM
     Route: 048
  6. METFORMIN [Concomitant]
     Active Substance: METFORMIN HYDROCHLORIDE
     Indication: TYPE 2 DIABETES MELLITUS
     Dosage: 1 GRAM, TID
     Route: 048
  7. CLOZARIL [Suspect]
     Active Substance: CLOZAPINE
     Dosage: 375 MILLIGRAM, PM
     Route: 048
     Dates: start: 20030801, end: 20201122
  8. METOPROLOL. [Concomitant]
     Active Substance: METOPROLOL
     Indication: HYPERTENSION
     Dosage: 47.5 MILLIGRAM, QD
     Route: 048
  9. EZETIMIBE. [Concomitant]
     Active Substance: EZETIMIBE
     Indication: HYPERCHOLESTEROLAEMIA
     Dosage: 10 MILLIGRAM, PM
     Route: 048
  10. ATORVASTATIN [Concomitant]
     Active Substance: ATORVASTATIN
     Indication: HYPERCHOLESTEROLAEMIA
     Dosage: 40 MILLIGRAM, PM
     Route: 048

REACTIONS (1)
  - Death [Fatal]

NARRATIVE: CASE EVENT DATE: 20201201
